FAERS Safety Report 23292448 (Version 1)
Quarter: 2023Q4

REPORT INFORMATION
  Report Type: Spontaneous
  Country: US (occurrence: None)
  Receive Date: 20231212
  Receipt Date: 20231212
  Transmission Date: 20240109
  Serious: No
  Sender: FDA-Public Use
  Company Number: None

PATIENT
  Age: 83 Year
  Sex: Female

DRUGS (2)
  1. JAKAFI [Suspect]
     Active Substance: RUXOLITINIB
     Dosage: FREQUENCY : TWICE A DAY;?
     Route: 048
     Dates: start: 20230901
  2. JAKAFI [Concomitant]
     Active Substance: RUXOLITINIB
     Dates: start: 20230901

REACTIONS (3)
  - Therapy change [None]
  - Skin discolouration [None]
  - Therapy cessation [None]

NARRATIVE: CASE EVENT DATE: 20231212
